FAERS Safety Report 13238329 (Version 1)
Quarter: 2017Q1

REPORT INFORMATION
  Report Type: Spontaneous
  Country: US (occurrence: US)
  Receive Date: 20170215
  Receipt Date: 20170215
  Transmission Date: 20170428
  Serious: Yes (Other)
  Sender: FDA-Public Use
  Company Number: None

PATIENT
  Age: 40 Year
  Sex: Female
  Weight: 100.8 kg

DRUGS (7)
  1. VITAMIN D3 [Concomitant]
     Active Substance: CHOLECALCIFEROL
  2. ATORVASTATIN [Suspect]
     Active Substance: ATORVASTATIN
  3. MULTIVITAMIN FOR WOMEN [Concomitant]
  4. SIMVASTATIN. [Suspect]
     Active Substance: SIMVASTATIN
     Indication: BLOOD CHOLESTEROL INCREASED
     Dosage: ?          QUANTITY:30 TABLET(S);?
     Route: 048
     Dates: start: 20160125, end: 20170206
  5. ACIDOPHULUS [Concomitant]
  6. MULTIVITAMIN [Concomitant]
     Active Substance: VITAMINS
  7. ACUDIOPHULUS [Concomitant]

REACTIONS (10)
  - Arthralgia [None]
  - Activities of daily living impaired [None]
  - Myalgia [None]
  - Vision blurred [None]
  - Somnolence [None]
  - Fatigue [None]
  - Memory impairment [None]
  - Headache [None]
  - Dizziness [None]
  - Impaired work ability [None]

NARRATIVE: CASE EVENT DATE: 20170201
